FAERS Safety Report 4528090-6 (Version None)
Quarter: 2004Q4

REPORT INFORMATION
  Report Type: 
  Country: None (occurrence: None)
  Receive Date: 20041124
  Receipt Date: 20031205
  Transmission Date: 20050328
  Serious: Yes (Hospitalization, Other)
  Sender: FDA-Public Use
  Company Number: 2003041020

PATIENT
  Age: 59 Year
  Sex: Male
  Weight: 87.9978 kg

DRUGS (16)
  1. TIKOSYN [Suspect]
     Indication: ATRIAL FIBRILLATION
     Dosage: 250 MCG (BID), ORAL
     Route: 048
     Dates: start: 20030918
  2. ISOSORBIDE MONONITRATE [Concomitant]
  3. METFORMIN HCL [Concomitant]
  4. OMEPRAZOLE [Concomitant]
  5. LOSARTAN POTASSIUM [Concomitant]
  6. LOVASTATIN [Concomitant]
  7. PREDNISONE [Concomitant]
  8. CALCIUM (CALCIUM) [Concomitant]
  9. ERGOCALCIFEROL (ERGOCALCIFEROL) [Concomitant]
  10. POLYCARBOPHIL CALCIUM (POLYCARBOPHIL CALCIUM) [Concomitant]
  11. DOCUSATE SODIUM (DOCUSATE SODIUM) [Concomitant]
  12. MULTIVITAMIN [Concomitant]
  13. PSYLLIUM HYDROPHILIC MUCILLOID (PSYLLIUM HYDROPHILIC MUCILLOID) [Concomitant]
  14. LEUPRORELIN ACETATE (LEUPRORELIN ACETATE) [Concomitant]
  15. ULTRACET [Concomitant]
  16. AMILORIDE W/HYDROCHLOROTHIAZIDE (HYDROCHLOROTHIAZIDE, AMILORIDE) [Concomitant]

REACTIONS (7)
  - ATRIAL FIBRILLATION [None]
  - CARDIOVERSION [None]
  - ELECTROCARDIOGRAM ABNORMAL [None]
  - ELECTROCARDIOGRAM QT PROLONGED [None]
  - METABOLIC DISORDER [None]
  - RENAL CYST [None]
  - RENAL DISORDER [None]
